FAERS Safety Report 10615909 (Version 1)
Quarter: 2014Q4

REPORT INFORMATION
  Report Type: Report from Study
  Country: IN (occurrence: IN)
  Receive Date: 20141201
  Receipt Date: 20141201
  Transmission Date: 20150529
  Serious: Yes (Hospitalization)
  Sender: FDA-Public Use
  Company Number: PHHY2014IN153565

PATIENT
  Age: 55 Year
  Sex: Female
  Weight: 72 kg

DRUGS (15)
  1. CHYMORAL [Suspect]
     Active Substance: CHYMOTRYPSIN\TRYPSIN
     Indication: SUPPLEMENTATION THERAPY
     Dosage: 1 DF, TID
     Route: 048
     Dates: start: 201309, end: 20130917
  2. FRAGMIN [Suspect]
     Active Substance: DALTEPARIN SODIUM
     Dosage: 14400 IU, BID, 0.56 ML
     Route: 058
     Dates: start: 20130905, end: 20130905
  3. LIVOGEN-Z [Concomitant]
     Indication: PRODUCT USED FOR UNKNOWN INDICATION
     Dosage: UNK UNK, QD (AT 08 AM FOR 30 DAYS)
     Route: 065
  4. GEMCAL [Concomitant]
     Active Substance: CALCIUM
     Indication: PRODUCT USED FOR UNKNOWN INDICATION
     Dosage: UNK UNK, QD (AT 08 AM FOR 30 DAYS)
     Route: 065
  5. FRAGMIN [Suspect]
     Active Substance: DALTEPARIN SODIUM
     Indication: ANTICOAGULANT THERAPY
     Dosage: 7200 IU, QD, 0.28 ML
     Route: 058
     Dates: start: 20130903, end: 20130903
  6. METHYCOBAL [Concomitant]
     Active Substance: METHYLCOBALAMIN
     Indication: PRODUCT USED FOR UNKNOWN INDICATION
     Dosage: 500 MG, QD (FOR 30 DAYS AT 08 AM)
     Route: 065
  7. PARACETAMOL [Concomitant]
     Active Substance: ACETAMINOPHEN
     Dosage: 50 MG, UNK
     Route: 042
     Dates: start: 20130907, end: 20130907
  8. DALTEPARIN SODIUM [Suspect]
     Active Substance: DALTEPARIN SODIUM
     Indication: ANTICOAGULANT THERAPY
     Dosage: UNK UNK, BID
     Route: 058
     Dates: start: 20130907, end: 20130910
  9. PARACETAMOL [Concomitant]
     Active Substance: ACETAMINOPHEN
     Indication: PRODUCT USED FOR UNKNOWN INDICATION
     Dosage: 1 MG, UNK
     Route: 042
     Dates: start: 20130907, end: 20130907
  10. DICLOFENAC [Suspect]
     Active Substance: DICLOFENAC
     Indication: PAIN
     Dosage: 100 MG, QD
     Route: 054
     Dates: start: 20130908, end: 20130909
  11. DICLOFENAC [Suspect]
     Active Substance: DICLOFENAC
     Dosage: 100 MG, QD
     Route: 054
     Dates: end: 20130917
  12. WARFARIN [Concomitant]
     Active Substance: WARFARIN
     Indication: PRODUCT USED FOR UNKNOWN INDICATION
     Route: 065
  13. FRAGMIN [Suspect]
     Active Substance: DALTEPARIN SODIUM
     Dosage: 14400 IU, BID, 0.56 ML
     Route: 058
     Dates: start: 20140904, end: 20140904
  14. TRAMADOL [Concomitant]
     Active Substance: TRAMADOL
     Indication: PRODUCT USED FOR UNKNOWN INDICATION
     Dosage: UNK
     Route: 065
     Dates: start: 20130907, end: 20130907
  15. ACITROM [Concomitant]
     Indication: PRODUCT USED FOR UNKNOWN INDICATION
     Dosage: 2 MG PER 3 MG ON ALTERNATE DAYS UNK
     Route: 065

REACTIONS (7)
  - Procedural haemorrhage [Recovered/Resolved]
  - Vaginal haemorrhage [Recovered/Resolved]
  - Wound secretion [Unknown]
  - Postoperative wound infection [Recovered/Resolved]
  - International normalised ratio increased [Unknown]
  - Wound haemorrhage [Unknown]
  - Escherichia infection [Recovered/Resolved]

NARRATIVE: CASE EVENT DATE: 20130912
